FAERS Safety Report 14600446 (Version 1)
Quarter: 2018Q1

REPORT INFORMATION
  Report Type: Report from Study
  Country: FR (occurrence: FR)
  Receive Date: 20180305
  Receipt Date: 20180305
  Transmission Date: 20180509
  Serious: Yes (Hospitalization, Other)
  Sender: FDA-Public Use
  Company Number: FR-GLAXOSMITHKLINE-FR2018032087

PATIENT
  Age: 31 Year
  Sex: Male
  Weight: 82 kg

DRUGS (6)
  1. FYCOMPA [Suspect]
     Active Substance: PERAMPANEL
     Indication: PARTIAL SEIZURES
     Dosage: 1 MG, QD
     Route: 048
     Dates: start: 20160819, end: 20160902
  2. FYCOMPA [Suspect]
     Active Substance: PERAMPANEL
     Dosage: 2 MG, QD
     Route: 048
     Dates: start: 20160903, end: 20160917
  3. LAMOTRIGINE. [Suspect]
     Active Substance: LAMOTRIGINE
     Dosage: DOSE DECREASED (DOSE UNKNOWN)
     Route: 048
     Dates: start: 20160101
  4. FYCOMPA [Suspect]
     Active Substance: PERAMPANEL
     Dosage: 4 MG, QD
     Route: 048
     Dates: start: 20160918, end: 20170824
  5. LAMOTRIGINE. [Suspect]
     Active Substance: LAMOTRIGINE
     Indication: EPILEPSY
     Dosage: 400 MG, QD
     Route: 048
     Dates: start: 20060101, end: 20160101
  6. PREGABALINE [Concomitant]
     Active Substance: PREGABALIN
     Indication: PRODUCT USED FOR UNKNOWN INDICATION
     Dosage: UNK
     Route: 065

REACTIONS (3)
  - Weight increased [Not Recovered/Not Resolved]
  - Fall [Recovered/Resolved]
  - Jaw fracture [Recovered/Resolved]

NARRATIVE: CASE EVENT DATE: 20160822
